FAERS Safety Report 5033969-5 (Version None)
Quarter: 2006Q2

REPORT INFORMATION
  Report Type: 
  Country: None (occurrence: None)
  Receive Date: 20060511
  Receipt Date: 20050527
  Transmission Date: 20061013
  Serious: Yes (Hospitalization)
  Sender: FDA-Public Use
  Company Number: US_0505118037

PATIENT
  Sex: 0

DRUGS (2)
  1. KEFLEX [Suspect]
     Indication: CELLULITIS
  2. TAMILU (OSELTAMIVIR PHOSPHATE) [Concomitant]

REACTIONS (2)
  - ERYTHEMA MULTIFORME [None]
  - INFECTION [None]
